FAERS Safety Report 15458106 (Version 2)
Quarter: 2018Q4

REPORT INFORMATION
  Report Type: Report from Study
  Country: TR (occurrence: TR)
  Receive Date: 20181003
  Receipt Date: 20181016
  Transmission Date: 20190204
  Serious: Yes (Death, Other)
  Sender: FDA-Public Use
  Company Number: TR-SUN PHARMACEUTICAL INDUSTRIES LTD-2018RR-185917

PATIENT
  Age: 38 Year
  Sex: Female

DRUGS (1)
  1. IMATINIB. [Suspect]
     Active Substance: IMATINIB MESYLATE
     Indication: CHORDOMA
     Dosage: 400 MG,
     Route: 065
     Dates: start: 201504

REACTIONS (5)
  - Drug effect incomplete [Unknown]
  - Disease progression [Fatal]
  - Periorbital oedema [Unknown]
  - Nausea [Unknown]
  - Rash [Unknown]
